FAERS Safety Report 10230752 (Version 2)
Quarter: 2014Q2

REPORT INFORMATION
  Report Type: Spontaneous
  Country: BR (occurrence: BR)
  Receive Date: 20140611
  Receipt Date: 20140611
  Transmission Date: 20141212
  Serious: Yes (Hospitalization)
  Sender: FDA-Public Use
  Company Number: BR-PFIZER INC-2013279563

PATIENT
  Age: 86 Year
  Sex: Female
  Weight: 74 kg

DRUGS (2)
  1. SUTENT [Suspect]
     Indication: RENAL CELL CARCINOMA
     Dosage: 50 MG, CYCLE 4 PER 2
     Route: 048
     Dates: start: 20130905
  2. DIOVAN [Concomitant]
     Dosage: 160 MG, 1X/DAY
     Route: 048

REACTIONS (6)
  - Haemorrhage [Unknown]
  - Gastrointestinal disorder [Unknown]
  - Asthenia [Unknown]
  - Muscular weakness [Unknown]
  - Activities of daily living impaired [Unknown]
  - Feeling abnormal [Not Recovered/Not Resolved]
